FAERS Safety Report 22225897 (Version 1)
Quarter: 2023Q2

REPORT INFORMATION
  Report Type: Spontaneous
  Country: US (occurrence: None)
  Receive Date: 20230419
  Receipt Date: 20230419
  Transmission Date: 20230721
  Serious: Yes (Other)
  Sender: FDA-Public Use
  Company Number: US-ROCHE-3330963

PATIENT
  Age: 46 Year
  Sex: Female

DRUGS (1)
  1. TECENTRIQ [Suspect]
     Active Substance: ATEZOLIZUMAB
     Indication: Bladder cancer
     Route: 065

REACTIONS (5)
  - Keratitis [Unknown]
  - Herpes simplex [Unknown]
  - Keratitis bacterial [Unknown]
  - Acanthamoeba keratitis [Unknown]
  - Metastatic carcinoma of the bladder [Unknown]
